FAERS Safety Report 12071487 (Version 1)
Quarter: 2016Q1

REPORT INFORMATION
  Report Type: Spontaneous
  Country: US (occurrence: US)
  Receive Date: 20160211
  Receipt Date: 20160211
  Transmission Date: 20160526
  Serious: Yes (Life-Threatening)
  Sender: FDA-Public Use
  Company Number: US-HOSPIRA-3159783

PATIENT
  Age: 6 Year
  Sex: Male
  Weight: 17.8 kg

DRUGS (3)
  1. ONDANSETRON [Concomitant]
     Active Substance: ONDANSETRON
     Indication: VOMITING
     Dosage: ONCE
     Route: 042
  2. SODIUM CHLORIDE. [Suspect]
     Active Substance: SODIUM CHLORIDE
     Indication: MEDICATION DILUTION
     Dosage: ONCE
     Route: 041
     Dates: start: 20160122, end: 20160122
  3. VINCRISTINE SULFATE. [Suspect]
     Active Substance: VINCRISTINE SULFATE
     Indication: ACUTE LYMPHOCYTIC LEUKAEMIA
     Dosage: ONCE
     Route: 041
     Dates: start: 20160122, end: 20160122

REACTIONS (2)
  - Anaphylactic reaction [Recovered/Resolved]
  - Hypotension [Recovered/Resolved]

NARRATIVE: CASE EVENT DATE: 20160122
